FAERS Safety Report 5782272-4 (Version None)
Quarter: 2008Q2

REPORT INFORMATION
  Report Type: 
  Country: None (occurrence: None)
  Receive Date: 20080623
  Receipt Date: 20080612
  Transmission Date: 20081010
  Serious: Yes (Death, Other)
  Sender: FDA-Public Use
  Company Number: US-PFIZER INC-2007035063

PATIENT
  Sex: Male
  Weight: 98 kg

DRUGS (9)
  1. SUTENT [Suspect]
     Indication: RENAL CELL CARCINOMA
     Dates: start: 20070328, end: 20070425
  2. DOXAZOSIN MESYLATE [Concomitant]
  3. VALSARTAN [Concomitant]
  4. ALLOPURINOL [Concomitant]
  5. ZOLOFT [Concomitant]
  6. TRICOR [Concomitant]
  7. MIRALAX [Concomitant]
  8. DEXAMETHASONE TAB [Concomitant]
  9. DILAUDID [Concomitant]

REACTIONS (7)
  - AMNESIA [None]
  - DISEASE PROGRESSION [None]
  - HAEMORRHAGE [None]
  - PERINEAL PAIN [None]
  - RASH PRURITIC [None]
  - RECTAL HAEMORRHAGE [None]
  - RENAL CELL CARCINOMA [None]
